FAERS Safety Report 8189500-9 (Version None)
Quarter: 2012Q1

REPORT INFORMATION
  Report Type: 
  Country: None (occurrence: None)
  Receive Date: 20120307
  Receipt Date: 20120301
  Transmission Date: 20120608
  Serious: No
  Sender: FDA-Public Use
  Company Number: US-PFIZER INC-2012051363

PATIENT
  Sex: Female

DRUGS (2)
  1. EFFEXOR XR [Suspect]
     Dosage: UNK
  2. PROTONIX [Suspect]
     Dosage: UNK

REACTIONS (5)
  - BLADDER DISCOMFORT [None]
  - MIGRAINE [None]
  - BLADDER IRRITATION [None]
  - HEADACHE [None]
  - SLEEP DISORDER [None]
